FAERS Safety Report 7751328-9 (Version None)
Quarter: 2011Q3

REPORT INFORMATION
  Report Type: 
  Country: None (occurrence: None)
  Receive Date: 20110914
  Receipt Date: 20110913
  Transmission Date: 20111222
  Serious: Yes (Life-Threatening)
  Sender: FDA-Public Use
  Company Number: TR-BAYER-2011-078035

PATIENT
  Age: 37 Year
  Sex: Male
  Weight: 70 kg

DRUGS (2)
  1. GADAVIST [Suspect]
     Indication: NUCLEAR MAGNETIC RESONANCE IMAGING
     Dosage: DAILY DOSE 7 ML
     Route: 042
  2. LANSOR [Concomitant]
     Dosage: UNK

REACTIONS (2)
  - APNOEA [None]
  - CARDIO-RESPIRATORY ARREST [None]
